FAERS Safety Report 10189103 (Version 1)
Quarter: 2014Q2

REPORT INFORMATION
  Report Type: Spontaneous
  Country: US (occurrence: None)
  Receive Date: 20140521
  Receipt Date: 20140521
  Transmission Date: 20141212
  Serious: Yes (Disabling)
  Sender: FDA-Public Use
  Company Number: None

PATIENT
  Age: 51 Year
  Sex: Female
  Weight: 74.84 kg

DRUGS (1)
  1. LATUDA [Suspect]
     Indication: BIPOLAR I DISORDER
     Dosage: 2 PILLS
     Route: 048
     Dates: start: 20130823, end: 20130908

REACTIONS (18)
  - Hostility [None]
  - Feeling of despair [None]
  - Muscle spasms [None]
  - Dyskinesia [None]
  - Feeling abnormal [None]
  - Akathisia [None]
  - Akinesia [None]
  - Extrapyramidal disorder [None]
  - Back disorder [None]
  - Incontinence [None]
  - Dysuria [None]
  - Weight decreased [None]
  - Spinal disorder [None]
  - Musculoskeletal disorder [None]
  - Walking aid user [None]
  - Back pain [None]
  - Pain in extremity [None]
  - Pain in extremity [None]
